FAERS Safety Report 4347006-9 (Version None)
Quarter: 2004Q1

REPORT INFORMATION
  Report Type: 
  Country: None (occurrence: None)
  Receive Date: 20040329
  Receipt Date: 20040212
  Transmission Date: 20041129
  Serious: No
  Sender: FDA-Public Use
  Company Number: USA040259284

PATIENT
  Sex: Female

DRUGS (1)
  1. STRATTERA [Suspect]
     Dosage: 40 MG/DAY
     Dates: start: 20040212

REACTIONS (4)
  - FEELING ABNORMAL [None]
  - FEELING OF RELAXATION [None]
  - NAUSEA [None]
  - SOMNOLENCE [None]
